FAERS Safety Report 7584208-2 (Version None)
Quarter: 2011Q2

REPORT INFORMATION
  Report Type: 
  Country: None (occurrence: None)
  Receive Date: 20110630
  Receipt Date: 20110208
  Transmission Date: 20111010
  Serious: No
  Sender: FDA-Public Use
  Company Number: US-ABBOTT-10P-163-0677620-00

PATIENT
  Age: 30 Year
  Sex: Female

DRUGS (5)
  1. NORVIR [Suspect]
     Indication: ANTIVIRAL TREATMENT
     Dates: start: 20100621
  2. COMBIVIR [Suspect]
     Indication: ANTIVIRAL TREATMENT
     Route: 048
     Dates: start: 20100621, end: 20100717
  3. REYATAZ [Suspect]
     Indication: ANTIVIRAL TREATMENT
     Dates: start: 20100621
  4. TENOFOVIR DISOPROXIL FUMARATE + EMTRICITABINE [Suspect]
     Indication: ANTIVIRAL TREATMENT
     Route: 048
     Dates: start: 20100621
  5. RETROVIR [Suspect]
     Indication: ANTIVIRAL TREATMENT
     Route: 042
     Dates: start: 20100914, end: 20100914

REACTIONS (3)
  - NAUSEA [None]
  - POOR PERIPHERAL CIRCULATION [None]
  - INDUCED LABOUR [None]
